FAERS Safety Report 5945167-9 (Version None)
Quarter: 2008Q4

REPORT INFORMATION
  Report Type: 
  Country: None (occurrence: None)
  Receive Date: 20081107
  Receipt Date: 20081031
  Transmission Date: 20090506
  Serious: Yes (Death, Hospitalization)
  Sender: FDA-Public Use
  Company Number: A0755447A

PATIENT
  Age: 40 Year
  Sex: Female
  Weight: 227.3 kg

DRUGS (1)
  1. AVANDIA [Suspect]
     Route: 048
     Dates: end: 20050801

REACTIONS (3)
  - CARDIAC FAILURE CONGESTIVE [None]
  - DEATH [None]
  - RESPIRATORY FAILURE [None]
